FAERS Safety Report 7778451-7 (Version None)
Quarter: 2011Q3

REPORT INFORMATION
  Report Type: 
  Country: None (occurrence: None)
  Receive Date: 20110926
  Receipt Date: 20110920
  Transmission Date: 20111222
  Serious: Yes (Hospitalization)
  Sender: FDA-Public Use
  Company Number: JP-GLAXOSMITHKLINE-B0712854A

PATIENT
  Sex: Male

DRUGS (11)
  1. WARFARIN SODIUM [Concomitant]
     Dosage: .9MG PER DAY
     Route: 048
     Dates: start: 20110406
  2. AMARYL [Concomitant]
     Dosage: 1MG PER DAY
     Route: 048
  3. ADONA [Concomitant]
     Dosage: 90MG PER DAY
     Dates: start: 20110403
  4. CANDESARTAN CILEXETIL [Concomitant]
     Dosage: 8MG PER DAY
     Route: 048
  5. FLOMOX [Concomitant]
     Dosage: 300MG PER DAY
     Dates: start: 20110404
  6. PARAMIDIN [Concomitant]
     Dosage: 300MG PER DAY
     Route: 048
     Dates: start: 20110406
  7. TRANEXAMIC ACID [Concomitant]
     Dosage: 750MG PER DAY
     Dates: start: 20110403
  8. UBRETID [Concomitant]
     Dosage: 5MG PER DAY
     Route: 048
  9. URIEF [Concomitant]
     Dosage: 8MG PER DAY
     Route: 048
  10. DUTASTERIDE [Suspect]
     Indication: PRODUCT USED FOR UNKNOWN INDICATION
     Dosage: .5MG PER DAY
     Route: 048
     Dates: start: 20110304
  11. NORVASC [Concomitant]
     Dosage: 2.5MG PER DAY
     Route: 048

REACTIONS (3)
  - PROSTATIC HAEMORRHAGE [None]
  - HAEMATURIA [None]
  - BLADDER TAMPONADE [None]
